FAERS Safety Report 26040023 (Version 1)
Quarter: 2025Q4

REPORT INFORMATION
  Report Type: Spontaneous
  Country: EU (occurrence: EU)
  Receive Date: 20251113
  Receipt Date: 20251113
  Transmission Date: 20260118
  Serious: Yes (Other)
  Sender: NOVARTIS
  Company Number: EU-002147023-NVSC2025RO171282

PATIENT
  Age: 65 Year
  Sex: Female

DRUGS (10)
  1. KISQALI [Suspect]
     Active Substance: RIBOCICLIB SUCCINATE
     Indication: Breast cancer metastatic
     Dosage: UNK
     Route: 065
     Dates: start: 202101
  2. KISQALI [Suspect]
     Active Substance: RIBOCICLIB SUCCINATE
     Indication: Metastases to bone
  3. KISQALI [Suspect]
     Active Substance: RIBOCICLIB SUCCINATE
     Indication: Metastases to lung
  4. KISQALI [Suspect]
     Active Substance: RIBOCICLIB SUCCINATE
     Indication: Metastases to liver
  5. KISQALI [Suspect]
     Active Substance: RIBOCICLIB SUCCINATE
     Indication: Metastases to pleura
  6. LETROZOLE [Concomitant]
     Active Substance: LETROZOLE
     Indication: Breast cancer metastatic
     Dosage: UNK
     Route: 065
     Dates: start: 202101
  7. LETROZOLE [Concomitant]
     Active Substance: LETROZOLE
     Indication: Metastases to lung
  8. LETROZOLE [Concomitant]
     Active Substance: LETROZOLE
     Indication: Metastases to pleura
  9. LETROZOLE [Concomitant]
     Active Substance: LETROZOLE
     Indication: Metastases to bone
  10. LETROZOLE [Concomitant]
     Active Substance: LETROZOLE
     Indication: Metastases to liver

REACTIONS (11)
  - Neutropenia [Unknown]
  - Leukopenia [Unknown]
  - Steroid diabetes [Unknown]
  - Pneumonia viral [Unknown]
  - COVID-19 [Unknown]
  - Asthenia [Unknown]
  - Dyspnoea [Unknown]
  - Inflammation [Unknown]
  - Orthopnoea [Unknown]
  - Pleural effusion [Unknown]
  - Therapeutic product effect incomplete [Unknown]
